FAERS Safety Report 20609658 (Version 1)
Quarter: 2022Q1

REPORT INFORMATION
  Report Type: Spontaneous
  Country: FR (occurrence: FR)
  Receive Date: 20220318
  Receipt Date: 20220318
  Transmission Date: 20220423
  Serious: Yes (Other)
  Sender: FDA-Public Use
  Company Number: None

PATIENT
  Age: 76 Year
  Sex: Male

DRUGS (2)
  1. LEVOFLOXACIN [Suspect]
     Active Substance: LEVOFLOXACIN
     Indication: Lung disorder
     Dosage: 1000 MILLIGRAM DAILY; 500 MG 2/D
     Route: 048
     Dates: start: 20220215
  2. CLOZAPINE [Suspect]
     Active Substance: CLOZAPINE
     Indication: Disorientation
     Dosage: 12.5 MILLIGRAM DAILY;
     Route: 048
     Dates: start: 2017

REACTIONS (2)
  - Leukopenia [Unknown]
  - Neutropenia [Unknown]

NARRATIVE: CASE EVENT DATE: 20220216
